FAERS Safety Report 5570219-5 (Version None)
Quarter: 2007Q4

REPORT INFORMATION
  Report Type: 
  Country: None (occurrence: None)
  Receive Date: 20071217
  Receipt Date: 20071205
  Transmission Date: 20080405
  Serious: Yes (Other)
  Sender: FDA-Public Use
  Company Number: 2007-03431

PATIENT
  Age: 55 Year
  Sex: Female
  Weight: 50 kg

DRUGS (7)
  1. VELCADE [Suspect]
     Indication: MULTIPLE MYELOMA
     Dosage: 1.80 MG, INTRAVENOUS
     Route: 042
     Dates: start: 20070713, end: 20071006
  2. DEXAMETHASONE TAB [Suspect]
     Indication: MULTIPLE MYELOMA
     Dosage: 20.00 MG, INTRAVENOUS
     Route: 042
     Dates: start: 20070713, end: 20071006
  3. OLMETEC(OLMESARTAN MEDOXOMIL) [Suspect]
     Indication: HYPERTENSION
     Dosage: 5.00 MG, ORAL
     Route: 048
  4. ALLOPURINOL [Concomitant]
  5. ALOSENN (TARAXACUM OFFICINALE, ACHILLEA, SENNA LEAF, RUBIA ROOT TINCTU [Concomitant]
  6. ZOLPIDEM TARTRATE [Concomitant]
  7. PL POWDER (EXCEPT [DPO]) [Concomitant]

REACTIONS (18)
  - BLOOD ALKALINE PHOSPHATASE INCREASED [None]
  - BLOOD LACTATE DEHYDROGENASE INCREASED [None]
  - C-REACTIVE PROTEIN INCREASED [None]
  - DYSGEUSIA [None]
  - EMPYEMA [None]
  - FACE OEDEMA [None]
  - HAEMOGLOBIN DECREASED [None]
  - HYPOALBUMINAEMIA [None]
  - HYPOTENSION [None]
  - INSOMNIA [None]
  - MEIBOMIANITIS [None]
  - NASAL CONGESTION [None]
  - NASOPHARYNGITIS [None]
  - NEUROPATHY PERIPHERAL [None]
  - NEUTROPHIL COUNT DECREASED [None]
  - PAROSMIA [None]
  - PLATELET COUNT DECREASED [None]
  - WHITE BLOOD CELL COUNT DECREASED [None]
